FAERS Safety Report 9985152 (Version 1)
Quarter: 2014Q1

REPORT INFORMATION
  Report Type: Report from Study
  Country: US (occurrence: US)
  Receive Date: 20140307
  Receipt Date: 20140307
  Transmission Date: 20141002
  Serious: No
  Sender: FDA-Public Use
  Company Number: US-ABBVIE-14P-163-1186546-00

PATIENT
  Age: 62 Year
  Sex: Female

DRUGS (14)
  1. HUMIRA [Suspect]
     Indication: PSORIATIC ARTHROPATHY
     Route: 058
     Dates: start: 2013, end: 201308
  2. HUMIRA [Suspect]
     Route: 058
  3. HUMIRA [Suspect]
     Route: 058
     Dates: start: 20131229
  4. LEVOTHYROXINE [Concomitant]
     Indication: AUTOIMMUNE THYROIDITIS
     Dosage: TUES, THURS, SAT, SUN
  5. LEVOTHYROXINE [Concomitant]
     Dosage: MON, WED, FRI
  6. PREVACID [Concomitant]
     Indication: GASTROOESOPHAGEAL REFLUX DISEASE
  7. GLIPIZIDE [Concomitant]
     Indication: DIABETES MELLITUS
     Dosage: IN MORNING WITH FOOD
  8. OMEGA 3 [Concomitant]
     Indication: VITAMIN SUPPLEMENTATION
     Dosage: IN MORNING
  9. CLONAZEPAM [Concomitant]
     Indication: BIPOLAR DISORDER
  10. CYMBALTA [Concomitant]
     Indication: BIPOLAR DISORDER
  11. TOPAMAX [Concomitant]
     Indication: MIGRAINE PROPHYLAXIS
     Dosage: AT NIGHT
  12. LIPITOR [Concomitant]
     Indication: BLOOD CHOLESTEROL INCREASED
  13. NORTRIPTYLINE [Concomitant]
     Indication: INSOMNIA
     Dosage: AT NIGHT
  14. PSORIASIS OINTMENTS [Concomitant]
     Indication: PSORIASIS

REACTIONS (8)
  - Blood potassium decreased [Not Recovered/Not Resolved]
  - Localised infection [Recovered/Resolved]
  - Pustular psoriasis [Not Recovered/Not Resolved]
  - Nasopharyngitis [Unknown]
  - Psoriasis [Not Recovered/Not Resolved]
  - Psoriatic arthropathy [Not Recovered/Not Resolved]
  - Joint swelling [Not Recovered/Not Resolved]
  - Arthralgia [Not Recovered/Not Resolved]
